FAERS Safety Report 8599872-9 (Version None)
Quarter: 2012Q3

REPORT INFORMATION
  Report Type: 
  Country: None (occurrence: None)
  Receive Date: 20120816
  Receipt Date: 20120418
  Transmission Date: 20120928
  Serious: Yes (Other)
  Sender: FDA-Public Use
  Company Number: US-AMGEN-QUU429013

PATIENT
  Age: 14 Year
  Sex: Male
  Weight: 57.1 kg

DRUGS (3)
  1. IMMUNE GLOBULIN NOS [Concomitant]
     Dosage: UNK
     Route: 042
  2. MULTI-VITAMINS [Concomitant]
     Indication: NUTRITIONAL SUPPORT
     Dosage: UNK UNK, QID
     Route: 048
  3. NPLATE [Suspect]
     Indication: IDIOPATHIC THROMBOCYTOPENIC PURPURA
     Dosage: 10 MUG/KG, UNK
     Route: 058
     Dates: start: 20090818, end: 20091021

REACTIONS (1)
  - DRUG INEFFECTIVE [None]
